FAERS Safety Report 17149609 (Version 2)
Quarter: 2019Q4

REPORT INFORMATION
  Report Type: Report from Study
  Country: US (occurrence: US)
  Receive Date: 20191213
  Receipt Date: 20191218
  Transmission Date: 20200122
  Serious: Yes (Death)
  Sender: FDA-Public Use
  Company Number: US-ACTELION-A-US2019-199435

PATIENT
  Sex: Male

DRUGS (3)
  1. TRACLEER [Suspect]
     Active Substance: BOSENTAN
     Dosage: 62.5 MG, BID
     Route: 048
     Dates: start: 20180510
  2. VENTAVIS [Suspect]
     Active Substance: ILOPROST
     Indication: PULMONARY ARTERIAL HYPERTENSION
     Dosage: 20 MCG/ML, 6-9 TIMES DAILY
     Route: 055
     Dates: start: 201908, end: 20191208
  3. TRACLEER [Suspect]
     Active Substance: BOSENTAN
     Indication: PULMONARY ARTERIAL HYPERTENSION
     Dosage: 125 MG, BID
     Route: 048
     Dates: start: 20180527, end: 20191126

REACTIONS (6)
  - Dyspnoea [Not Recovered/Not Resolved]
  - Swelling [Recovered/Resolved]
  - Pain in extremity [Unknown]
  - Condition aggravated [Fatal]
  - Fatigue [Recovered/Resolved]
  - Exercise tolerance decreased [Not Recovered/Not Resolved]
